FAERS Safety Report 7418621-0 (Version None)
Quarter: 2011Q2

REPORT INFORMATION
  Report Type: 
  Country: None (occurrence: None)
  Receive Date: 20110407
  Receipt Date: 20110325
  Transmission Date: 20111010
  Serious: Yes (Hospitalization)
  Sender: FDA-Public Use
  Company Number: 1000019680

PATIENT
  Age: 83 Year
  Sex: Male

DRUGS (6)
  1. CETRIZINE (CETIRIZINE HYDROCHLORIDE) (TABLETS) [Suspect]
     Dosage: 10 MG (10 MG,1 IN 1 D),ORAL
     Route: 048
     Dates: end: 20110120
  2. REMINYL (GALANTAMINE) (CAPSULES) [Suspect]
     Dosage: 24 MG (24 MG,  1 IN 1 D), ORAL, 16 MG (16 MG, 1 IN 1 D),ORAL
     Route: 048
  3. OMEPRAZOLE [Suspect]
     Dosage: 10 MG (10 MG, 1 IN 1 D),ORAL
     Route: 048
     Dates: end: 20110120
  4. STABLON (TIANEPTINE) (TABLETS) [Suspect]
     Dosage: 25 MG (12.5 MG, 2 IN 1 D) , ORAL
     Route: 048
     Dates: end: 20110120
  5. PRAXINOR (THEODRENALIN, CAFEDRINE)(TABLETS) [Suspect]
     Dosage: 3 DOSAGE FORMS (3 DOSAGE FORMS, 1 IN 1 D),ORAL
     Route: 048
     Dates: end: 20110120
  6. MEMANTINE [Suspect]
     Dosage: 20 MG (20 MG, 1 IN 1 D), ORAL
     Route: 048
     Dates: end: 20110120

REACTIONS (11)
  - SCRATCH [None]
  - BLOOD BILIRUBIN INCREASED [None]
  - PANCYTOPENIA [None]
  - GAIT DISTURBANCE [None]
  - PROTHROMBIN TIME PROLONGED [None]
  - BILIRUBIN CONJUGATED INCREASED [None]
  - GENERAL PHYSICAL HEALTH DETERIORATION [None]
  - ASTHENIA [None]
  - DECREASED APPETITE [None]
  - COGNITIVE DISORDER [None]
  - ESCHAR [None]
